FAERS Safety Report 7686982-3 (Version None)
Quarter: 2011Q3

REPORT INFORMATION
  Report Type: 
  Country: None (occurrence: None)
  Receive Date: 20110816
  Receipt Date: 20110805
  Transmission Date: 20111222
  Serious: Yes (Hospitalization)
  Sender: FDA-Public Use
  Company Number: CA-JNJFOC-20110506974

PATIENT
  Sex: Female

DRUGS (7)
  1. REMICADE [Suspect]
     Route: 042
     Dates: start: 20110419
  2. REMICADE [Suspect]
     Route: 042
     Dates: start: 20110727
  3. REMICADE [Suspect]
     Indication: CROHN'S DISEASE
     Dosage: 18-24 MONTHS
     Route: 042
     Dates: start: 20080314, end: 20080604
  4. REMICADE [Suspect]
     Route: 042
     Dates: start: 20080619, end: 20090126
  5. REMICADE [Suspect]
     Route: 042
     Dates: start: 20110608
  6. REMICADE [Suspect]
     Route: 042
     Dates: start: 20090928, end: 20110405
  7. REMICADE [Suspect]
     Route: 042
     Dates: start: 20090202, end: 20090914

REACTIONS (5)
  - BRONCHITIS [None]
  - TONSILLITIS [None]
  - COUGH [None]
  - SARCOMA [None]
  - NASAL CONGESTION [None]
